FAERS Safety Report 11312229 (Version 1)
Quarter: 2015Q3

REPORT INFORMATION
  Report Type: Spontaneous
  Country: US (occurrence: None)
  Receive Date: 20150724
  Receipt Date: 20150724
  Transmission Date: 20151125
  Serious: Yes (Hospitalization)
  Sender: FDA-Public Use
  Company Number: None

PATIENT
  Age: 39 Year
  Sex: Female

DRUGS (11)
  1. FOLIC ACID. [Concomitant]
     Active Substance: FOLIC ACID
  2. LORAZAPAM [Concomitant]
     Active Substance: LORAZEPAM
  3. ACETAMINOPHEN. [Concomitant]
     Active Substance: ACETAMINOPHEN
  4. CHLORHEXADINE [Concomitant]
     Active Substance: CHLORHEXIDINE
  5. DOCUSATE [Concomitant]
     Active Substance: DOCUSATE
  6. LACOSAMIDE [Concomitant]
     Active Substance: LACOSAMIDE
  7. FAMOTIDINE. [Concomitant]
     Active Substance: FAMOTIDINE
  8. CLONAZEPAM. [Concomitant]
     Active Substance: CLONAZEPAM
  9. FENTANYL. [Concomitant]
     Active Substance: FENTANYL
  10. LEVETIRACETAM. [Concomitant]
     Active Substance: LEVETIRACETAM
  11. PHENOBARBITAL. [Suspect]
     Active Substance: PHENOBARBITAL
     Indication: CONVULSION PROPHYLAXIS
     Route: 048
     Dates: start: 20150413, end: 20150418

REACTIONS (12)
  - Acute generalised exanthematous pustulosis [None]
  - Eosinophilia [None]
  - Subcorneal pustular dermatosis [None]
  - Documented hypersensitivity to administered product [None]
  - Leukocytosis [None]
  - Rash generalised [None]
  - Lymphocytic infiltration [None]
  - Pyrexia [None]
  - Liver function test abnormal [None]
  - Renal impairment [None]
  - Drug reaction with eosinophilia and systemic symptoms [None]
  - Drug clearance decreased [None]

NARRATIVE: CASE EVENT DATE: 20150418
